FAERS Safety Report 11008213 (Version 1)
Quarter: 2015Q2

REPORT INFORMATION
  Report Type: Spontaneous
  Country: GB (occurrence: GB)
  Receive Date: 20150410
  Receipt Date: 20150410
  Transmission Date: 20150821
  Serious: Yes (Other)
  Sender: FDA-Public Use
  Company Number: GB-JNJFOC-20150403200

PATIENT
  Age: 4 Month
  Sex: Female

DRUGS (2)
  1. CALPOL [Suspect]
     Active Substance: ACETAMINOPHEN
     Route: 065
  2. CALPOL [Suspect]
     Active Substance: ACETAMINOPHEN
     Indication: PRODUCT USED FOR UNKNOWN INDICATION
     Route: 065

REACTIONS (6)
  - Medical device complication [Unknown]
  - Pallor [Recovered/Resolved]
  - Foreign body aspiration [Recovered/Resolved]
  - Respiratory arrest [Recovered/Resolved]
  - Skin discolouration [Recovered/Resolved]
  - Staring [Recovered/Resolved]
